FAERS Safety Report 5063556-4 (Version None)
Quarter: 2006Q3

REPORT INFORMATION
  Report Type: 
  Country: None (occurrence: None)
  Receive Date: 20060727
  Receipt Date: 20060720
  Transmission Date: 20061208
  Serious: Yes (Hospitalization)
  Sender: FDA-Public Use
  Company Number: 2006UW14831

PATIENT
  Age: 86 Year
  Sex: Male
  Weight: 72.6 kg

DRUGS (10)
  1. IRESSA [Suspect]
     Indication: SQUAMOUS CELL CARCINOMA OF SKIN
     Route: 048
     Dates: start: 20060217
  2. HYDROCHLOROTHIAZIDE [Concomitant]
     Indication: HYPERTENSION
     Dates: start: 19950101
  3. ATENOLOL [Concomitant]
     Indication: HYPERTENSION
     Dates: start: 19950101
  4. PLAVIX [Concomitant]
     Indication: PLATELET DISORDER
     Dates: start: 20050101
  5. SIMVASTATIN [Concomitant]
     Indication: HYPERLIPIDAEMIA
     Dates: start: 19950101
  6. FELODIPINE [Concomitant]
     Indication: ANGINA PECTORIS
     Dates: start: 19950101
  7. FELODIPINE [Concomitant]
     Indication: HYPERTENSION
     Dates: start: 19950101
  8. BACTRIM [Concomitant]
     Indication: ANTIBIOTIC PROPHYLAXIS
     Dates: start: 20060605, end: 20060703
  9. MAGNESIUM [Concomitant]
     Indication: MINERAL SUPPLEMENTATION
     Dates: start: 20060705
  10. DOXYCYCLINE HCL [Concomitant]
     Indication: ANTIBIOTIC PROPHYLAXIS
     Dates: start: 20060705

REACTIONS (6)
  - BLOOD CREATININE INCREASED [None]
  - BLOOD UREA INCREASED [None]
  - DEHYDRATION [None]
  - ELECTROLYTE IMBALANCE [None]
  - HYPERKALAEMIA [None]
  - HYPOMAGNESAEMIA [None]
